FAERS Safety Report 20074541 (Version 1)
Quarter: 2021Q4

REPORT INFORMATION
  Report Type: Spontaneous
  Country: CN (occurrence: CN)
  Receive Date: 20211116
  Receipt Date: 20211116
  Transmission Date: 20220303
  Serious: Yes (Other)
  Sender: FDA-Public Use
  Company Number: CN-PFIZER INC-202101513512

PATIENT
  Age: 27 Year
  Sex: Female
  Weight: 68 kg

DRUGS (3)
  1. PIPERACILLIN SODIUM\TAZOBACTAM SODIUM [Suspect]
     Active Substance: PIPERACILLIN SODIUM\TAZOBACTAM SODIUM
     Indication: Postoperative wound infection
     Dosage: 4.5 G, 3X/DAY
     Route: 041
     Dates: start: 20211027, end: 20211101
  2. CEFUROXIME SODIUM [Suspect]
     Active Substance: CEFUROXIME SODIUM
     Indication: Premature rupture of membranes
     Dosage: 1.5 G, 3X/DAY
     Route: 041
     Dates: start: 20211025, end: 20211027
  3. METRONIDAZOLE\SODIUM CHLORIDE [Suspect]
     Active Substance: METRONIDAZOLE\SODIUM CHLORIDE
     Indication: Premature rupture of membranes
     Dosage: 0.5 G, 3X/DAY
     Route: 041
     Dates: start: 20211026, end: 20211027

REACTIONS (3)
  - Fungal infection [Recovering/Resolving]
  - Dysbiosis [Recovering/Resolving]
  - Maternal exposure during pregnancy [Unknown]

NARRATIVE: CASE EVENT DATE: 20211027
